FAERS Safety Report 6478362-3 (Version None)
Quarter: 2009Q4

REPORT INFORMATION
  Report Type: 
  Country: None (occurrence: None)
  Receive Date: 20091202
  Receipt Date: 20091118
  Transmission Date: 20100525
  Serious: Yes (Life-Threatening, Other)
  Sender: FDA-Public Use
  Company Number: FABR-1000129

PATIENT
  Age: 45 Year
  Sex: Male
  Weight: 50 kg

DRUGS (10)
  1. FABRAZYME [Suspect]
     Indication: FABRY'S DISEASE
     Dosage: 54 MG, INTRAVENOUS ; 0.5 MG/KG, INTRAVENOUS
     Route: 042
     Dates: start: 20080221, end: 20080306
  2. FABRAZYME [Suspect]
     Indication: FABRY'S DISEASE
     Dosage: 54 MG, INTRAVENOUS ; 0.5 MG/KG, INTRAVENOUS
     Route: 042
     Dates: start: 20080722
  3. REPLAGAL (AGALSIDASE ALFA) [Suspect]
     Indication: FABRY'S DISEASE
     Dosage: 0.2 MG/KG, Q2W, INTRAVENOUS
     Route: 042
     Dates: start: 20050501, end: 20080101
  4. KARDEGIC (ACETYLSALICYLIC LYSINE, ACETYLSALICYLIC ACID) [Concomitant]
  5. ATORVASTATIN CALCIUM [Concomitant]
  6. RAMIPRIL [Concomitant]
  7. ZOLOFT [Concomitant]
  8. FOSAMAX [Concomitant]
  9. VITAMIN D NOS (VITAMIN D NOS) [Concomitant]
  10. CALCIUM (CALCIUM) [Concomitant]

REACTIONS (29)
  - ANAPHYLACTIC REACTION [None]
  - ANGIOKERATOMA [None]
  - CHILLS [None]
  - DYSAESTHESIA [None]
  - DYSPNOEA [None]
  - HYPERKINESIA [None]
  - HYPERTENSION [None]
  - HYPOGLYCAEMIA [None]
  - HYPOHIDROSIS [None]
  - HYPOTENSION [None]
  - HYPOXIA [None]
  - LEFT VENTRICULAR HYPERTROPHY [None]
  - LIVEDO RETICULARIS [None]
  - LYMPHOEDEMA [None]
  - MALAISE [None]
  - NAUSEA [None]
  - OEDEMA PERIPHERAL [None]
  - OXYGEN SATURATION DECREASED [None]
  - PALLOR [None]
  - PARAESTHESIA [None]
  - PERIPHERAL COLDNESS [None]
  - PROTEINURIA [None]
  - PYREXIA [None]
  - SHOCK [None]
  - SPINAL FRACTURE [None]
  - TACHYCARDIA [None]
  - TELANGIECTASIA [None]
  - VASOCONSTRICTION [None]
  - VOMITING [None]
